FAERS Safety Report 5289225-3 (Version None)
Quarter: 2007Q1

REPORT INFORMATION
  Report Type: 
  Country: None (occurrence: None)
  Receive Date: 20070124
  Receipt Date: 20061004
  Transmission Date: 20070707
  Serious: Yes (Hospitalization)
  Sender: FDA-Public Use
  Company Number: HQWYE640105OCT06

PATIENT
  Age: 81 Year
  Sex: Male

DRUGS (7)
  1. CORDARONE [Suspect]
     Indication: ATRIAL FIBRILLATION
     Dosage: SEE IMAGE
     Route: 048
     Dates: start: 20060401, end: 20060101
  2. CORDARONE [Suspect]
     Indication: ATRIAL FIBRILLATION
     Dosage: SEE IMAGE
     Route: 048
     Dates: start: 20060101, end: 20060902
  3. XANAX [Concomitant]
  4. REMERON [Concomitant]
  5. LEXAPRO [Concomitant]
  6. NEXIUM [Concomitant]
  7. COUMADIN [Concomitant]

REACTIONS (1)
  - PULMONARY TOXICITY [None]
